FAERS Safety Report 7916788-9 (Version None)
Quarter: 2011Q4

REPORT INFORMATION
  Report Type: 
  Country: None (occurrence: None)
  Receive Date: 20111116
  Receipt Date: 20111018
  Transmission Date: 20120403
  Serious: No
  Sender: FDA-Public Use
  Company Number: US-BAYER-2011-101669

PATIENT
  Sex: Female

DRUGS (1)
  1. BEYAZ [Suspect]

REACTIONS (2)
  - MENORRHAGIA [None]
  - ABDOMINAL PAIN LOWER [None]
